FAERS Safety Report 10314004 (Version 5)
Quarter: 2015Q1

REPORT INFORMATION
  Report Type: Report from Study
  Country: US (occurrence: US)
  Receive Date: 20140718
  Receipt Date: 20150310
  Transmission Date: 20150720
  Serious: Yes (Other)
  Sender: FDA-Public Use
  Company Number: US-SA-2013SA112611

PATIENT
  Age: 51 Year
  Sex: Female
  Weight: 59.87 kg

DRUGS (6)
  1. IMITREX [Concomitant]
     Active Substance: SUMATRIPTAN\SUMATRIPTAN SUCCINATE
     Dates: start: 2003
  2. AUBAGIO [Suspect]
     Active Substance: TERIFLUNOMIDE
     Indication: MULTIPLE SCLEROSIS
     Route: 048
     Dates: start: 20141125
  3. AUBAGIO [Suspect]
     Active Substance: TERIFLUNOMIDE
     Indication: MULTIPLE SCLEROSIS
     Route: 048
     Dates: start: 20131016
  4. AUBAGIO [Suspect]
     Active Substance: TERIFLUNOMIDE
     Indication: MULTIPLE SCLEROSIS
     Route: 048
     Dates: start: 20140325
  5. HYDROCODONE [Concomitant]
     Active Substance: HYDROCODONE
     Indication: BACK PAIN
     Dates: start: 2006
  6. BACLOFEN. [Concomitant]
     Active Substance: BACLOFEN
     Indication: MUSCLE SPASMS
     Dosage: 3 TIMES
     Dates: start: 2014

REACTIONS (18)
  - Seasonal allergy [Unknown]
  - Cough [Not Recovered/Not Resolved]
  - Headache [Unknown]
  - Feeling abnormal [Unknown]
  - Nasopharyngitis [Unknown]
  - Bronchitis [Unknown]
  - Memory impairment [Unknown]
  - Throat irritation [Unknown]
  - Hysterectomy [Unknown]
  - Burning sensation [Not Recovered/Not Resolved]
  - Pain [Unknown]
  - Smear cervix abnormal [Unknown]
  - Biopsy site unspecified abnormal [Unknown]
  - Fatigue [Unknown]
  - Abdominal discomfort [Unknown]
  - Sinusitis [Unknown]
  - Hot flush [Not Recovered/Not Resolved]
  - Contusion [Unknown]

NARRATIVE: CASE EVENT DATE: 201311
